FAERS Safety Report 10235281 (Version 1)
Quarter: 2014Q2

REPORT INFORMATION
  Report Type: Spontaneous
  Country: US (occurrence: US)
  Receive Date: 20140613
  Receipt Date: 20140613
  Transmission Date: 20141212
  Serious: No
  Sender: FDA-Public Use
  Company Number: US-PFIZER INC-2014159451

PATIENT
  Age: 58 Year
  Sex: Male

DRUGS (2)
  1. INLYTA [Suspect]
     Indication: RENAL CANCER
     Dosage: 5 MG, BID
     Dates: start: 20140430, end: 201405
  2. INLYTA [Suspect]
     Dosage: UNK (REDUCED DOSAGE)
     Dates: start: 201405

REACTIONS (2)
  - Dysphonia [Not Recovered/Not Resolved]
  - Fatigue [Unknown]
